FAERS Safety Report 21659541 (Version 1)
Quarter: 2022Q4

REPORT INFORMATION
  Report Type: Spontaneous
  Country: AT (occurrence: AT)
  Receive Date: 20221129
  Receipt Date: 20221129
  Transmission Date: 20230113
  Serious: Yes (Hospitalization, Other)
  Sender: FDA-Public Use
  Company Number: AT-ABBVIE-4215256

PATIENT
  Sex: Male

DRUGS (3)
  1. HUMIRA [Suspect]
     Active Substance: ADALIMUMAB
     Indication: Crohn^s disease
     Dosage: STOP DATE : 3 WEEKS PRIOR TO FIRST SURGERY
     Route: 058
     Dates: start: 2012, end: 20190812
  2. HUMIRA [Suspect]
     Active Substance: ADALIMUMAB
     Route: 058
     Dates: start: 20190923, end: 20201221
  3. HUMIRA [Suspect]
     Active Substance: ADALIMUMAB
     Route: 058
     Dates: start: 20210201

REACTIONS (9)
  - Road traffic accident [Unknown]
  - Back pain [Unknown]
  - Frequent bowel movements [Unknown]
  - Muscle injury [Unknown]
  - Arthralgia [Unknown]
  - Drug level decreased [Recovered/Resolved]
  - Rotator cuff syndrome [Unknown]
  - Intestinal stenosis [Unknown]
  - Pain in extremity [Unknown]

NARRATIVE: CASE EVENT DATE: 20190719
